FAERS Safety Report 9123695 (Version 1)
Quarter: 2013Q1

REPORT INFORMATION
  Report Type: Spontaneous
  Country: FR (occurrence: FR)
  Receive Date: 20130227
  Receipt Date: 20130227
  Transmission Date: 20140127
  Serious: Yes (Hospitalization)
  Sender: FDA-Public Use
  Company Number: FR-009507513-1302FRA009169

PATIENT
  Age: 80 Year
  Sex: Female

DRUGS (2)
  1. FORTZAAR 100 MG/25 MG, COMPRIM? PELLICUL? [Suspect]
     Dosage: 1 DF, QD
     Route: 048
     Dates: start: 20120705, end: 20120912
  2. CYCLO 3 FORT [Concomitant]

REACTIONS (4)
  - Fall [Recovered/Resolved with Sequelae]
  - Syncope [Recovered/Resolved with Sequelae]
  - Hypokalaemia [Recovered/Resolved]
  - Vomiting [Recovered/Resolved]
